FAERS Safety Report 7663502 (Version 8)
Quarter: 2012Q4

REPORT INFORMATION
  Report Type: 
  Country: CA (occurrence: CA)
  Receive Date: 20101110
  Receipt Date: 20121008
  Transmission Date: 20130627
  Serious: Yes (Death, Hospitalization, Other)
  Sender: FDA-Public Use
  Company Number: PHHY2010CA73612

PATIENT
  Sex: Male

DRUGS (1)
  1. CLOZARIL [Suspect]
     Dosage: UNK UKN, UNK
     Dates: start: 20081102

REACTIONS (10)
  - Lung neoplasm malignant [Fatal]
  - Metastases to central nervous system [Fatal]
  - Neoplasm malignant [Fatal]
  - General physical health deterioration [Unknown]
  - Vertigo [Unknown]
  - Asthenia [Unknown]
  - Pleural effusion [Unknown]
  - Nausea [Unknown]
  - Fatigue [Unknown]
  - Lung infection [Unknown]
